FAERS Safety Report 8102385-1 (Version None)
Quarter: 2012Q1

REPORT INFORMATION
  Report Type: 
  Country: None (occurrence: None)
  Receive Date: 20120201
  Receipt Date: 20120126
  Transmission Date: 20120608
  Serious: No
  Sender: FDA-Public Use
  Company Number: US-PFIZER INC-2012022595

PATIENT
  Sex: Female
  Weight: 58.957 kg

DRUGS (9)
  1. ZOLOFT [Concomitant]
     Dosage: UNK
  2. OMEPRAZOLE [Concomitant]
     Dosage: UNK
  3. PREMARIN [Concomitant]
     Dosage: UNK
  4. LISINOPRIL [Concomitant]
     Indication: HYPERTENSION
     Dosage: UNK
  5. LYRICA [Suspect]
     Indication: FIBROMYALGIA
     Dosage: UNK
  6. NEURONTIN [Suspect]
     Indication: FIBROMYALGIA
     Dosage: 800 MG, 3X/DAY
     Route: 048
     Dates: start: 20111228, end: 20120113
  7. AMBIEN [Concomitant]
     Dosage: UNK
  8. PROMETHAZINE [Concomitant]
     Dosage: UNK
  9. LOMOTIL [Concomitant]
     Dosage: UNK

REACTIONS (3)
  - NAUSEA [None]
  - PYREXIA [None]
  - HEADACHE [None]
